FAERS Safety Report 10489672 (Version 3)
Quarter: 2014Q4

REPORT INFORMATION
  Report Type: Spontaneous
  Country: PL (occurrence: PL)
  Receive Date: 20141002
  Receipt Date: 20141112
  Transmission Date: 20150528
  Serious: Yes (Hospitalization, Other)
  Sender: FDA-Public Use
  Company Number: PL-AMGEN-POLSP2014074768

PATIENT
  Age: 80 Year
  Sex: Female

DRUGS (1)
  1. PROLIA [Suspect]
     Active Substance: DENOSUMAB
     Indication: OSTEOPOROSIS
     Dosage: UNK
     Route: 065
     Dates: start: 2012

REACTIONS (7)
  - Pathological fracture [Unknown]
  - Inflammation [Unknown]
  - Myocardial ischaemia [Unknown]
  - Hypertension [Unknown]
  - Osteolysis [Unknown]
  - Neuroma [Unknown]
  - Jaw fracture [Recovered/Resolved]

NARRATIVE: CASE EVENT DATE: 201312
